FAERS Safety Report 6771933-6 (Version None)
Quarter: 2010Q2

REPORT INFORMATION
  Report Type: 
  Country: None (occurrence: None)
  Receive Date: 20100616
  Receipt Date: 20100609
  Transmission Date: 20101027
  Serious: Yes (Other)
  Sender: FDA-Public Use
  Company Number: US-JNJFOC-20100603448

PATIENT
  Sex: Female
  Weight: 42.64 kg

DRUGS (4)
  1. CONCERTA [Suspect]
     Indication: ATTENTION DEFICIT/HYPERACTIVITY DISORDER
     Route: 048
  2. CONCERTA [Suspect]
     Route: 048
  3. CLONIDINE [Concomitant]
     Indication: SLEEP DISORDER
     Route: 048
  4. LUVOX [Concomitant]
     Indication: ANXIETY
     Route: 065

REACTIONS (2)
  - AUTOIMMUNE DISORDER [None]
  - SKIN DISCOLOURATION [None]
